FAERS Safety Report 8907931 (Version 1)
Quarter: 2012Q4

REPORT INFORMATION
  Report Type: 
  Country: US (occurrence: US)
  Receive Date: 20121114
  Receipt Date: 20121114
  Transmission Date: 20130627
  Serious: Yes (Hospitalization, Other)
  Sender: FDA-Public Use
  Company Number: PHEH2012US018717

PATIENT
  Age: 52 Year
  Sex: Male

DRUGS (11)
  1. AFINITOR [Suspect]
     Indication: RENAL CANCER
     Dosage: 1 DF, QD
     Route: 048
     Dates: start: 20120822
  2. SUPERPEP [Concomitant]
     Dates: start: 20120920
  3. OXYCODONE [Concomitant]
     Dates: start: 20120911
  4. LEVOTHYROXINE [Concomitant]
  5. HYDROCODONE W/ACETAMINOPHEN [Concomitant]
     Dates: start: 20120914
  6. MORPHINE SULFATE [Concomitant]
     Dates: start: 20120601
  7. MULTIVITAMINS [Concomitant]
     Dates: start: 19000101
  8. OMEPRAZOLE [Concomitant]
  9. ASPIRIN [Concomitant]
  10. LORAZEPAM [Concomitant]
  11. TRAZODONE [Concomitant]

REACTIONS (3)
  - Intestinal obstruction [Recovering/Resolving]
  - Abdominal pain [Recovered/Resolved]
  - Anaemia [Not Recovered/Not Resolved]
